FAERS Safety Report 7981501-6 (Version None)
Quarter: 2011Q4

REPORT INFORMATION
  Report Type: 
  Country: None (occurrence: None)
  Receive Date: 20111215
  Receipt Date: 20111209
  Transmission Date: 20120403
  Serious: Yes (Life-Threatening, Hospitalization, Other)
  Sender: FDA-Public Use
  Company Number: GB-PFIZER INC-K201101031

PATIENT
  Age: 71 Year
  Sex: Female

DRUGS (9)
  1. PARACETAMOL [Concomitant]
     Dosage: UNK
  2. CLOPIDOGREL [Concomitant]
     Dosage: UNK
  3. LACTULOSE [Concomitant]
     Dosage: UNK
  4. ALTACE [Suspect]
     Dosage: 5 MG, UNK
     Route: 048
     Dates: start: 20110404, end: 20110811
  5. ASPIRIN [Concomitant]
     Dosage: UNK
  6. BISOPROLOL [Concomitant]
     Dosage: UNK
  7. SIMVASTATIN [Concomitant]
     Dosage: UNK
  8. FUROSEMIDE [Concomitant]
     Dosage: UNK
  9. PREDNISOLONE [Concomitant]
     Dosage: UNK

REACTIONS (2)
  - ANGIOEDEMA [None]
  - MYOCARDIAL INFARCTION [None]
